FAERS Safety Report 6454616-1 (Version None)
Quarter: 2009Q4

REPORT INFORMATION
  Report Type: 
  Country: None (occurrence: None)
  Receive Date: 20091118
  Receipt Date: 20091103
  Transmission Date: 20100525
  Serious: Yes (Death)
  Sender: FDA-Public Use
  Company Number: 09-001754

PATIENT
  Age: 18 Year
  Sex: Female
  Weight: 83.4 kg

DRUGS (2)
  1. LOESTRIN 24 FE [Suspect]
     Indication: DYSMENORRHOEA
     Dosage: 20/1000UG, QD, ORAL
     Route: 048
     Dates: start: 20090801, end: 20090101
  2. VYVANSE (LISDEXAMFETAMINE MESILATE) [Concomitant]

REACTIONS (1)
  - PULMONARY EMBOLISM [None]
